FAERS Safety Report 4370851-0 (Version None)
Quarter: 2004Q2

REPORT INFORMATION
  Report Type: 
  Country: None (occurrence: None)
  Receive Date: 20040601
  Receipt Date: 20040519
  Transmission Date: 20050107
  Serious: Yes (Other)
  Sender: FDA-Public Use
  Company Number: A-CH2004-06330

PATIENT
  Age: 51 Year
  Sex: Male

DRUGS (8)
  1. TRACLEER [Suspect]
     Indication: PULMONARY HYPERTENSION
     Dosage: 62.5 - 125 MG, BID, ORAL
     Route: 048
     Dates: start: 20040114, end: 20040213
  2. TRACLEER [Suspect]
     Indication: PULMONARY HYPERTENSION
     Dosage: 62.5 - 125 MG, BID, ORAL
     Route: 048
     Dates: start: 20040214, end: 20040415
  3. WARFARIN SODIUM [Concomitant]
  4. THYROXIN (LEVOTHYROXINE SODIUM) [Concomitant]
  5. AMIODARONE HCL [Concomitant]
  6. BUMETANIDE [Concomitant]
  7. SPIRONOLACTONE [Concomitant]
  8. TRAMADOL HCL [Concomitant]

REACTIONS (3)
  - BLOOD ALKALINE PHOSPHATASE INCREASED [None]
  - BLOOD BILIRUBIN INCREASED [None]
  - LIVER FUNCTION TEST ABNORMAL [None]
